FAERS Safety Report 4833974-5 (Version None)
Quarter: 2005Q4

REPORT INFORMATION
  Report Type: 
  Country: None (occurrence: None)
  Receive Date: 20051122
  Receipt Date: 20051012
  Transmission Date: 20060501
  Serious: Yes (Other)
  Sender: FDA-Public Use
  Company Number: US-AMGEN-US154066

PATIENT
  Sex: Female
  Weight: 90.8 kg

DRUGS (8)
  1. ENBREL [Suspect]
     Indication: RHEUMATOID ARTHRITIS
     Route: 058
     Dates: start: 20030317
  2. METHOTREXATE [Suspect]
     Route: 058
     Dates: start: 19920101, end: 19960101
  3. CHRONDROITAN + GLUCOSAMINE [Concomitant]
     Dates: start: 20050823
  4. VITAMIN CAP [Concomitant]
     Dates: start: 20050823
  5. TEMAZEPAM [Concomitant]
     Dates: start: 20050803
  6. TYLENOL W/ CODEINE [Concomitant]
     Dates: start: 20030901
  7. FOLIC ACID [Concomitant]
     Dates: start: 20030901
  8. LODINE [Concomitant]
     Dates: end: 20050819

REACTIONS (2)
  - BURNING SENSATION [None]
  - HEPATIC ENZYME INCREASED [None]
